FAERS Safety Report 5363366-4 (Version None)
Quarter: 2007Q2

REPORT INFORMATION
  Report Type: 
  Country: None (occurrence: None)
  Receive Date: 20070615
  Receipt Date: 20070605
  Transmission Date: 20071010
  Serious: Yes (Other)
  Sender: FDA-Public Use
  Company Number: URSO-2007-133

PATIENT
  Age: 63 Year
  Sex: Female

DRUGS (1)
  1. URSO 250 [Suspect]
     Dosage: ORAL
     Route: 048
     Dates: start: 20050301, end: 20050301

REACTIONS (2)
  - ALVEOLITIS ALLERGIC [None]
  - PNEUMONIA [None]
